FAERS Safety Report 25525851 (Version 2)
Quarter: 2025Q3

REPORT INFORMATION
  Report Type: Spontaneous
  Country: EU (occurrence: EU)
  Receive Date: 20250707
  Receipt Date: 20250710
  Transmission Date: 20251021
  Serious: Yes (Hospitalization)
  Sender: IPSEN BIOPHARMACEUTICALS, INC.
  Company Number: None

PATIENT
  Age: 35 Year
  Sex: Female
  Weight: 53.5 kg

DRUGS (6)
  1. DYSPORT [Suspect]
     Active Substance: ABOBOTULINUMTOXINA
     Indication: Relapsing-remitting multiple sclerosis
     Dates: start: 20250509, end: 20250509
  2. DYSPORT [Suspect]
     Active Substance: ABOBOTULINUMTOXINA
     Dates: start: 20250509, end: 20250509
  3. KESIMPTA [Concomitant]
     Active Substance: OFATUMUMAB
     Indication: Relapsing-remitting multiple sclerosis
     Dates: start: 20250128
  4. OXYBUTYNIN [Concomitant]
     Active Substance: OXYBUTYNIN
  5. BACLOFEN [Concomitant]
     Active Substance: BACLOFEN
  6. DESLORATADINE [Concomitant]
     Active Substance: DESLORATADINE

REACTIONS (1)
  - Botulism [Recovering/Resolving]

NARRATIVE: CASE EVENT DATE: 20250512
